FAERS Safety Report 8810190 (Version 1)
Quarter: 2012Q4

REPORT INFORMATION
  Report Type: 
  Country: US (occurrence: US)
  Receive Date: 20120926
  Receipt Date: 20120926
  Transmission Date: 20130627
  Serious: No
  Sender: FDA-Public Use
  Company Number: US-009507513-1209USA007673

PATIENT

DRUGS (1)
  1. ETONOGESTREL IMPLANT- IMPLANON NEXT [Suspect]
     Dosage: 1 DF, UNK
     Route: 059
     Dates: start: 20120708

REACTIONS (1)
  - Device difficult to use [Unknown]
